FAERS Safety Report 24146370 (Version 1)
Quarter: 2024Q3

REPORT INFORMATION
  Report Type: Spontaneous
  Country: AU (occurrence: AU)
  Receive Date: 20240729
  Receipt Date: 20240729
  Transmission Date: 20241017
  Serious: Yes (Other)
  Sender: AMGEN
  Company Number: AU-AMGEN-AUSSP2024145096

PATIENT
  Age: 59 Year
  Sex: Female

DRUGS (1)
  1. PROLIA [Suspect]
     Active Substance: DENOSUMAB
     Indication: Osteoporosis
     Dosage: UNK, STANDARD DOSAGE Q6MO
     Route: 065
     Dates: start: 2018

REACTIONS (3)
  - Sternal fracture [Unknown]
  - Therapy cessation [Unknown]
  - Bone density abnormal [Unknown]
